FAERS Safety Report 8008450-1 (Version None)
Quarter: 2011Q4

REPORT INFORMATION
  Report Type: 
  Country: None (occurrence: None)
  Receive Date: 20111227
  Receipt Date: 20111221
  Transmission Date: 20120403
  Serious: No
  Sender: FDA-Public Use
  Company Number: US-BAYER-2011-123365

PATIENT
  Sex: Female

DRUGS (2)
  1. ASPIRIN [Suspect]
  2. ALEVE (CAPLET) [Suspect]
     Dosage: 2 U, QD
     Route: 048
     Dates: start: 20111214

REACTIONS (1)
  - DIARRHOEA [None]
